FAERS Safety Report 24800482 (Version 2)
Quarter: 2025Q1

REPORT INFORMATION
  Report Type: Spontaneous
  Country: US (occurrence: US)
  Receive Date: 20250102
  Receipt Date: 20250116
  Transmission Date: 20250408
  Serious: Yes (Life-Threatening, Hospitalization)
  Sender: TEVA
  Company Number: US-TEVA-VS-3279974

PATIENT
  Age: 3 Month
  Sex: Male

DRUGS (3)
  1. AMIODARONE [Suspect]
     Active Substance: AMIODARONE
     Indication: Supraventricular tachycardia
     Route: 065
  2. FLECAINIDE [Suspect]
     Active Substance: FLECAINIDE
     Indication: Supraventricular tachycardia
     Route: 065
  3. FLECAINIDE [Suspect]
     Active Substance: FLECAINIDE
     Indication: Supraventricular tachycardia
     Route: 065

REACTIONS (10)
  - Bradycardia [Recovering/Resolving]
  - Metabolic acidosis [Unknown]
  - Electrocardiogram QRS complex prolonged [Recovered/Resolved]
  - Accidental overdose [Unknown]
  - Hypophagia [Unknown]
  - Toxicity to various agents [Unknown]
  - Lethargy [Unknown]
  - Respiratory distress [Unknown]
  - Drug interaction [Unknown]
  - Product preparation error [Unknown]
